FAERS Safety Report 9107570 (Version 1)
Quarter: 2013Q1

REPORT INFORMATION
  Report Type: Spontaneous
  Country: GB (occurrence: GB)
  Receive Date: 20130221
  Receipt Date: 20130221
  Transmission Date: 20140127
  Serious: Yes (Life-Threatening, Other)
  Sender: FDA-Public Use
  Company Number: PHHY2013GB016249

PATIENT
  Age: 71 Year
  Sex: Male
  Weight: 83.81 kg

DRUGS (2)
  1. RAMIPRIL [Suspect]
     Indication: HYPERTENSION
     Dosage: 5 MG
     Route: 048
     Dates: start: 20120709, end: 20120802
  2. RANITIDINE [Concomitant]
     Dosage: 2 DF

REACTIONS (4)
  - Depression [Recovered/Resolved]
  - Throat tightness [Recovered/Resolved]
  - Suicidal ideation [Recovered/Resolved]
  - Dyspnoea [Recovered/Resolved]
